FAERS Safety Report 11837472 (Version 3)
Quarter: 2016Q2

REPORT INFORMATION
  Report Type: Report from Study
  Country: FI (occurrence: FI)
  Receive Date: 20151215
  Receipt Date: 20160620
  Transmission Date: 20160815
  Serious: Yes (Death, Hospitalization, Other)
  Sender: FDA-Public Use
  Company Number: FI-AMGEN-FINNI2015133709

PATIENT
  Age: 69 Year
  Sex: Male

DRUGS (2)
  1. CARFILZOMIB [Suspect]
     Active Substance: CARFILZOMIB
     Indication: PLASMA CELL MYELOMA
     Dosage: 48 UNK, QD
     Route: 042
     Dates: start: 20151012
  2. DEXAMETHASONE. [Concomitant]
     Active Substance: DEXAMETHASONE
     Dosage: 18 MG, UNK

REACTIONS (2)
  - Plasma cell myeloma [Unknown]
  - Cerebral haematoma [Fatal]

NARRATIVE: CASE EVENT DATE: 20151206
